FAERS Safety Report 10213335 (Version 4)
Quarter: 2014Q4

REPORT INFORMATION
  Report Type: Spontaneous
  Country: US (occurrence: None)
  Receive Date: 20140529
  Receipt Date: 20141128
  Transmission Date: 20150528
  Serious: Yes (Death, Hospitalization, Other)
  Sender: FDA-Public Use
  Company Number: UNT-2014-000497

PATIENT
  Age: 69 Year
  Sex: Male
  Weight: 87.1 kg

DRUGS (2)
  1. TYVASO [Suspect]
     Active Substance: TREPROSTINIL
     Indication: COR PULMONALE CHRONIC
     Route: 055
     Dates: start: 20110908
  2. ADCIRCA [Concomitant]
     Active Substance: TADALAFIL

REACTIONS (9)
  - Chest pain [None]
  - Fall [None]
  - Spinal osteoarthritis [None]
  - Asthma [None]
  - Renal failure [None]
  - Spine malformation [None]
  - Septic shock [None]
  - Back disorder [None]
  - Acute respiratory failure [None]

NARRATIVE: CASE EVENT DATE: 201402
